FAERS Safety Report 14411783 (Version 3)
Quarter: 2018Q1

REPORT INFORMATION
  Report Type: Spontaneous
  Country: CA (occurrence: CA)
  Receive Date: 20180119
  Receipt Date: 20180220
  Transmission Date: 20180509
  Serious: Yes (Hospitalization, Other)
  Sender: FDA-Public Use
  Company Number: CA-PFIZER INC-2016196610

PATIENT
  Age: 55 Year
  Sex: Female

DRUGS (4)
  1. XELJANZ [Suspect]
     Active Substance: TOFACITINIB CITRATE
     Dosage: 5 MG, 1X/DAY
     Route: 048
     Dates: start: 20171221
  2. XELJANZ [Suspect]
     Active Substance: TOFACITINIB CITRATE
     Indication: RHEUMATOID ARTHRITIS
     Dosage: 5 MG, 2X/DAY
     Route: 048
     Dates: start: 20160222, end: 201706
  3. CRESTOR [Concomitant]
     Active Substance: ROSUVASTATIN CALCIUM
     Dosage: UNK
  4. CIPRALEX [Concomitant]
     Active Substance: ESCITALOPRAM OXALATE
     Dosage: UNK

REACTIONS (21)
  - Emotional disorder [Recovered/Resolved]
  - Cough [Recovered/Resolved]
  - Blood urine present [Unknown]
  - Nasal inflammation [Unknown]
  - Mean cell haemoglobin concentration increased [Unknown]
  - Gastroenteritis viral [Recovered/Resolved]
  - Drug ineffective [Unknown]
  - Musculoskeletal chest pain [Recovered/Resolved]
  - Back pain [Not Recovered/Not Resolved]
  - Pain in extremity [Unknown]
  - Granulocyte count decreased [Unknown]
  - Oropharyngeal pain [Recovered/Resolved]
  - Band neutrophil count decreased [Unknown]
  - Rhinorrhoea [Recovered/Resolved]
  - Haematemesis [Unknown]
  - Pain [Recovering/Resolving]
  - Blood test abnormal [Unknown]
  - Haemoglobin decreased [Unknown]
  - Lung disorder [Recovering/Resolving]
  - Groin pain [Unknown]
  - Complement factor increased [Unknown]

NARRATIVE: CASE EVENT DATE: 201606
